FAERS Safety Report 9479139 (Version 2)
Quarter: 2013Q3

REPORT INFORMATION
  Report Type: Report from Study
  Country: US (occurrence: US)
  Receive Date: 20130827
  Receipt Date: 20130827
  Transmission Date: 20140515
  Serious: Yes (Death, Life-Threatening, Hospitalization, Other)
  Sender: FDA-Public Use
  Company Number: US-BRISTOL-MYERS SQUIBB COMPANY-14960066

PATIENT
  Age: 74 Year
  Sex: Female
  Weight: 127.3 kg

DRUGS (30)
  1. APIXABAN [Suspect]
     Indication: EMBOLISM
     Dosage: ALSO ON 13SEP09
     Dates: start: 20090829, end: 20100121
  2. PLACEBO [Suspect]
     Indication: EMBOLISM
     Dates: start: 20090829
  3. CYMBALTA [Concomitant]
     Indication: AFFECTIVE DISORDER
     Route: 048
     Dates: start: 200706
  4. LANTUS [Concomitant]
     Indication: DIABETES MELLITUS
     Route: 058
     Dates: start: 200808
  5. NOVOLOG [Concomitant]
  6. ONDANSETRON [Concomitant]
  7. TYLENOL [Concomitant]
     Indication: PAIN
     Route: 048
     Dates: start: 20090828
  8. AMBIEN [Concomitant]
     Indication: SLEEP DISORDER
     Route: 048
     Dates: start: 200606
  9. METOCLOPRAMIDE [Concomitant]
  10. LEVAQUIN [Concomitant]
  11. NEXIUM [Concomitant]
  12. VANCOMYCIN [Concomitant]
  13. CARAFATE [Concomitant]
  14. CATAPRES [Concomitant]
     Indication: HYPERTENSION
     Route: 062
     Dates: start: 20090828
  15. URSODIOL [Concomitant]
  16. GLUCOSE [Concomitant]
  17. BISACODYL [Concomitant]
  18. AMBIEN [Concomitant]
  19. PEPCID [Concomitant]
     Indication: HIATUS HERNIA
     Route: 048
     Dates: start: 20090627
  20. BENICAR [Concomitant]
     Indication: HYPERTENSION
     Route: 048
     Dates: start: 200606
  21. PROMETHAZINE [Concomitant]
     Indication: NAUSEA
     Route: 048
  22. METOPROLOL [Concomitant]
     Indication: HYPERTENSION
     Route: 048
     Dates: start: 200706
  23. AMLODIPINE BESYLATE [Concomitant]
     Indication: HYPERTENSION
     Route: 048
     Dates: start: 200706
  24. XANAX [Concomitant]
     Indication: ANXIETY
     Route: 048
     Dates: start: 200606
  25. DEXAMETHASONE [Concomitant]
     Indication: CHEMOTHERAPY
     Route: 042
     Dates: start: 20090325
  26. GEMCITABINE [Concomitant]
     Indication: CHEMOTHERAPY
     Route: 042
     Dates: start: 20090325
  27. ANZEMET [Concomitant]
     Indication: CHEMOTHERAPY
     Route: 042
     Dates: start: 20090810
  28. ISOSORBIDE MONONITRATE [Concomitant]
     Indication: HYPERTENSION
     Route: 048
     Dates: start: 20090830
  29. DULCOLAX [Concomitant]
     Indication: CONSTIPATION
     Route: 048
  30. WELLBUTRIN XL [Concomitant]
     Indication: DEPRESSION
     Route: 048
     Dates: start: 20091013

REACTIONS (3)
  - Pancreatic carcinoma [Fatal]
  - Gastrointestinal haemorrhage [Recovered/Resolved with Sequelae]
  - Hypotension [Recovered/Resolved]
